FAERS Safety Report 8838906 (Version 1)
Quarter: 2012Q4

REPORT INFORMATION
  Report Type: 
  Country: US (occurrence: US)
  Receive Date: 20121015
  Receipt Date: 20121015
  Transmission Date: 20130627
  Serious: No
  Sender: FDA-Public Use
  Company Number: US-009507513-1210USA001897

PATIENT
  Sex: Female
  Weight: 69.39 kg

DRUGS (1)
  1. IMPLANON [Suspect]
     Indication: CONTRACEPTION
     Dosage: 1 rod, every three years
     Route: 059
     Dates: start: 20100113

REACTIONS (2)
  - Unintended pregnancy [Unknown]
  - Medical device complication [Unknown]
